FAERS Safety Report 15006595 (Version 1)
Quarter: 2018Q2

REPORT INFORMATION
  Report Type: Report from Study
  Country: US (occurrence: US)
  Receive Date: 20180613
  Receipt Date: 20180613
  Transmission Date: 20180711
  Serious: No
  Sender: FDA-Public Use
  Company Number: US-US WORLDMEDS, LLC-USW201709-001354

PATIENT
  Age: 73 Year
  Sex: Female
  Weight: 79.37 kg

DRUGS (9)
  1. LOSARTAN. [Concomitant]
     Active Substance: LOSARTAN
  2. NEXIUM [Concomitant]
     Active Substance: ESOMEPRAZOLE MAGNESIUM
     Indication: GASTROOESOPHAGEAL REFLUX DISEASE
  3. COLACE [Concomitant]
     Active Substance: DOCUSATE SODIUM
     Indication: CONSTIPATION
  4. COREG [Concomitant]
     Active Substance: CARVEDILOL
     Indication: HYPERTENSION
  5. RYTARY [Concomitant]
     Active Substance: CARBIDOPA\LEVODOPA
     Indication: PARKINSON^S DISEASE
  6. ELIQUIS [Concomitant]
     Active Substance: APIXABAN
  7. PRAVASTATIN SODIUM. [Concomitant]
     Active Substance: PRAVASTATIN SODIUM
     Indication: BLOOD CHOLESTEROL INCREASED
  8. IBANDRONATE SODIUM. [Concomitant]
     Active Substance: IBANDRONATE SODIUM
     Indication: BONE DISORDER
  9. APOKYN [Suspect]
     Active Substance: APOMORPHINE HYDROCHLORIDE
     Indication: PARKINSON^S DISEASE
     Route: 058
     Dates: start: 20170909

REACTIONS (3)
  - Feeling drunk [Recovered/Resolved]
  - Nausea [Recovered/Resolved]
  - Somnolence [Recovered/Resolved]

NARRATIVE: CASE EVENT DATE: 20170918
